FAERS Safety Report 8502870-4 (Version None)
Quarter: 2012Q3

REPORT INFORMATION
  Report Type: 
  Country: None (occurrence: None)
  Receive Date: 20120705
  Receipt Date: 20120705
  Transmission Date: 20120928
  Serious: Yes (Other)
  Sender: FDA-Public Use
  Company Number: None

PATIENT
  Age: 56 Year
  Sex: Female
  Weight: 72.1219 kg

DRUGS (2)
  1. DECONEX DMX 400 MG POLY PHARMACEUTICALS [Suspect]
     Indication: BRONCHITIS
     Dosage: 1TABLET TWICE DAILY PO
     Route: 048
     Dates: start: 20120702, end: 20120703
  2. DECONEX DMX 400 MG POLY PHARMACEUTICALS [Suspect]
     Indication: SINUS CONGESTION
     Dosage: 1TABLET TWICE DAILY PO
     Route: 048
     Dates: start: 20120702, end: 20120703

REACTIONS (3)
  - HYPERSENSITIVITY [None]
  - OROPHARYNGEAL BLISTERING [None]
  - PAIN [None]
